FAERS Safety Report 4583013-9 (Version None)
Quarter: 2005Q1

REPORT INFORMATION
  Report Type: 
  Country: None (occurrence: None)
  Receive Date: 20050125
  Receipt Date: 20040927
  Transmission Date: 20050727
  Serious: No
  Sender: FDA-Public Use
  Company Number: USA040979462

PATIENT
  Age: 64 Year
  Sex: Female

DRUGS (3)
  1. FORTEO [Suspect]
     Indication: OSTEOPOROSIS
     Dates: start: 20040824
  2. CYTOXAN [Concomitant]
  3. IMURAN [Concomitant]

REACTIONS (2)
  - NAUSEA [None]
  - WHITE BLOOD CELL COUNT DECREASED [None]
